FAERS Safety Report 19132676 (Version 1)
Quarter: 2021Q2

REPORT INFORMATION
  Report Type: Spontaneous
  Country: US (occurrence: US)
  Receive Date: 20210414
  Receipt Date: 20210414
  Transmission Date: 20210717
  Serious: No
  Sender: FDA-Public Use
  Company Number: US-ASTRAZENECA-2021A224905

PATIENT
  Age: 24362 Day
  Sex: Female
  Weight: 74.8 kg

DRUGS (1)
  1. BREZTRI AEROSPHERE [Suspect]
     Active Substance: BUDESONIDE\FORMOTEROL\GLYCOPYRRONIUM
     Indication: ASTHMA
     Dosage: 320/18/9.6MCG, 2 PUFF, TWICE DAILY
     Route: 055
     Dates: start: 20210304

REACTIONS (4)
  - Wrong technique in device usage process [Unknown]
  - Device malfunction [Unknown]
  - Cough [Unknown]
  - Incorrect dose administered [Unknown]

NARRATIVE: CASE EVENT DATE: 20210304
